FAERS Safety Report 21721902 (Version 1)
Quarter: 2022Q4

REPORT INFORMATION
  Report Type: Spontaneous
  Country: GB (occurrence: GB)
  Receive Date: 20221213
  Receipt Date: 20221213
  Transmission Date: 20230112
  Serious: Yes (Other)
  Sender: FDA-Public Use
  Company Number: GB-CMP PHARMA-2022CMP00039

PATIENT
  Age: 5 Decade
  Sex: Female

DRUGS (4)
  1. HYDROCORTISONE [Suspect]
     Active Substance: HYDROCORTISONE
     Indication: Crohn^s disease
     Dosage: 100 MG, 4X/DAY
     Route: 065
  2. INTRAVENOUS FLUIDS [Concomitant]
     Indication: Crohn^s disease
     Route: 042
  3. UNSPECIFIED ANALGESIA [Concomitant]
     Indication: Crohn^s disease
     Route: 065
  4. UNSPECIFIED ANTI-EMETICS [Concomitant]
     Indication: Crohn^s disease
     Route: 065

REACTIONS (1)
  - Sinus bradycardia [Recovered/Resolved]
